FAERS Safety Report 25249575 (Version 2)
Quarter: 2025Q2

REPORT INFORMATION
  Report Type: Spontaneous
  Country: IN (occurrence: IN)
  Receive Date: 20250429
  Receipt Date: 20250506
  Transmission Date: 20250717
  Serious: Yes (Life-Threatening, Hospitalization)
  Sender: ALKEM
  Company Number: None

PATIENT
  Age: 52 Year
  Sex: Female
  Weight: 78 kg

DRUGS (3)
  1. MYCOPHENOLATE MOFETIL [Suspect]
     Active Substance: MYCOPHENOLATE MOFETIL
     Indication: Lupus nephritis
     Dosage: 500 MILLIGRAM, BID (EVERY 12 HOUR) (TABLET)
     Route: 065
     Dates: start: 2017
  2. MYCOPHENOLATE MOFETIL [Suspect]
     Active Substance: MYCOPHENOLATE MOFETIL
     Route: 065
  3. PREDNISOLONE [Suspect]
     Active Substance: PREDNISOLONE
     Indication: Lupus nephritis
     Dosage: 5 MILLIGRAM, QD (EVERY 1 DAY)
     Route: 048
     Dates: start: 2017

REACTIONS (2)
  - Female genital tract fistula [Recovered/Resolved]
  - Colon injury [Recovered/Resolved]
